FAERS Safety Report 5269206-6 (Version None)
Quarter: 2007Q1

REPORT INFORMATION
  Report Type: 
  Country: None (occurrence: None)
  Receive Date: 20070319
  Receipt Date: 20070308
  Transmission Date: 20070707
  Serious: Yes (Hospitalization)
  Sender: FDA-Public Use
  Company Number: AU-AMGEN-US212439

PATIENT
  Sex: Male

DRUGS (13)
  1. CINACALCET [Suspect]
     Indication: HYPERPARATHYROIDISM SECONDARY
     Route: 048
     Dates: start: 20061124
  2. ARANESP [Concomitant]
     Indication: DIALYSIS
     Route: 042
     Dates: start: 20050318
  3. ALLOPURINOL [Concomitant]
  4. ASPIRIN [Concomitant]
  5. CARBAMAZEPINE [Concomitant]
  6. ESOMEPRAZOLE MAGNESIUM [Concomitant]
  7. FERRUM H [Concomitant]
  8. NITRAZEPAM [Concomitant]
  9. PREDNISOLONE [Concomitant]
  10. PREDNISONE [Concomitant]
  11. SERTRALINE HYDROCHLORIDE [Concomitant]
  12. WARFARIN SODIUM [Concomitant]
  13. SODIUM POLYSTYRENE SULFONATE [Concomitant]

REACTIONS (1)
  - HYPOTENSION [None]
